FAERS Safety Report 6980360-8 (Version None)
Quarter: 2010Q3

REPORT INFORMATION
  Report Type: 
  Country: None (occurrence: None)
  Receive Date: 20100914
  Receipt Date: 20100907
  Transmission Date: 20110219
  Serious: Yes (Death)
  Sender: FDA-Public Use
  Company Number: JP-ROCHE-726394

PATIENT
  Sex: Male
  Weight: 69 kg

DRUGS (18)
  1. TOCILIZUMAB [Suspect]
     Indication: RHEUMATOID ARTHRITIS
     Route: 041
     Dates: start: 20080912, end: 20080912
  2. TOCILIZUMAB [Suspect]
     Route: 041
     Dates: start: 20081012, end: 20081012
  3. TOCILIZUMAB [Suspect]
     Route: 041
     Dates: start: 20081107, end: 20081107
  4. TOCILIZUMAB [Suspect]
     Route: 041
     Dates: start: 20081202, end: 20081202
  5. TOCILIZUMAB [Suspect]
     Route: 041
     Dates: start: 20081230, end: 20081230
  6. TOCILIZUMAB [Suspect]
     Route: 041
     Dates: start: 20090130, end: 20090130
  7. TOCILIZUMAB [Suspect]
     Route: 041
     Dates: start: 20090227
  8. AZULFIDINE [Concomitant]
     Dosage: DOSEFORM: ENTERIC COATED DRUG
     Route: 048
     Dates: start: 20081122
  9. MEDROL [Concomitant]
     Route: 048
     Dates: end: 20080820
  10. MEDROL [Concomitant]
     Route: 048
     Dates: start: 20080821, end: 20081204
  11. MEDROL [Concomitant]
     Route: 048
     Dates: start: 20081205
  12. CELCOX [Concomitant]
     Route: 048
  13. ADALAT CC [Concomitant]
     Route: 048
  14. ARTIST [Concomitant]
     Route: 048
     Dates: end: 20081106
  15. ARTIST [Concomitant]
     Route: 048
     Dates: end: 20081107
  16. OLMETEC [Concomitant]
     Route: 048
  17. PLAVIX [Concomitant]
     Route: 048
  18. BENECID [Concomitant]
     Route: 048

REACTIONS (1)
  - DEATH [None]
